FAERS Safety Report 25494888 (Version 1)
Quarter: 2025Q2

REPORT INFORMATION
  Report Type: Spontaneous
  Country: US (occurrence: US)
  Receive Date: 20250630
  Receipt Date: 20250630
  Transmission Date: 20250717
  Serious: No
  Sender: PFIZER
  Company Number: US-PFIZER INC-202500130377

PATIENT

DRUGS (1)
  1. IBRANCE [Suspect]
     Active Substance: PALBOCICLIB

REACTIONS (5)
  - Dyspepsia [Unknown]
  - Eructation [Unknown]
  - Dyspnoea [Unknown]
  - Hiccups [Unknown]
  - Speech disorder [Unknown]
